FAERS Safety Report 25159877 (Version 1)
Quarter: 2025Q2

REPORT INFORMATION
  Report Type: Spontaneous
  Country: CA (occurrence: CA)
  Receive Date: 20250404
  Receipt Date: 20250404
  Transmission Date: 20250716
  Serious: Yes (Other)
  Sender: SANOFI AVENTIS
  Company Number: CA-SANOFI-02469483

PATIENT
  Sex: Male

DRUGS (1)
  1. DUPIXENT [Suspect]
     Active Substance: DUPILUMAB

REACTIONS (6)
  - Adrenal insufficiency [Unknown]
  - Pyrexia [Unknown]
  - Asthma [Unknown]
  - Influenza [Unknown]
  - Cough [Unknown]
  - Chest discomfort [Unknown]
